FAERS Safety Report 23815991 (Version 2)
Quarter: 2024Q2

REPORT INFORMATION
  Report Type: Spontaneous
  Country: US (occurrence: US)
  Receive Date: 20240503
  Receipt Date: 20240603
  Transmission Date: 20240716
  Serious: No
  Sender: FDA-Public Use
  Company Number: US-JNJFOC-20240500987

PATIENT
  Sex: Female

DRUGS (1)
  1. REMICADE [Suspect]
     Active Substance: INFLIXIMAB
     Indication: Product used for unknown indication
     Route: 041

REACTIONS (8)
  - Exposure during pregnancy [Not Recovered/Not Resolved]
  - Chest discomfort [Unknown]
  - Chest discomfort [Unknown]
  - Flushing [Unknown]
  - Infusion related reaction [Unknown]
  - Nausea [Unknown]
  - Vaginal haemorrhage [Unknown]
  - Vomiting [Unknown]

NARRATIVE: CASE EVENT DATE: 20240109
